FAERS Safety Report 4840260-6 (Version None)
Quarter: 2005Q4

REPORT INFORMATION
  Report Type: 
  Country: None (occurrence: None)
  Receive Date: 20051129
  Receipt Date: 20051118
  Transmission Date: 20060501
  Serious: Yes (Hospitalization)
  Sender: FDA-Public Use
  Company Number: PE-MERCK-0511PER00019

PATIENT
  Age: 82 Year
  Sex: Female
  Weight: 50 kg

DRUGS (5)
  1. VYTORIN [Suspect]
     Route: 048
     Dates: start: 20051001, end: 20051029
  2. ALENDRONATE SODIUM [Concomitant]
     Indication: OSTEOPENIA
     Route: 048
     Dates: end: 20051029
  3. NUTRITIONAL SUPPLEMENTS [Concomitant]
     Indication: OSTEOPENIA
     Route: 048
     Dates: end: 20051029
  4. GLYBURIDE AND METFORMIN HYDROCHLORIDE [Concomitant]
     Indication: DIABETES MELLITUS
     Route: 048
     Dates: end: 20051029
  5. ATENOLOL [Concomitant]
     Indication: HYPERTENSION
     Route: 048

REACTIONS (4)
  - ASTHENIA [None]
  - CONFUSIONAL STATE [None]
  - DISCOMFORT [None]
  - HYPOGLYCAEMIA [None]
